FAERS Safety Report 4349244-8 (Version None)
Quarter: 2004Q2

REPORT INFORMATION
  Report Type: 
  Country: None (occurrence: None)
  Receive Date: 20040428
  Receipt Date: 20040421
  Transmission Date: 20050107
  Serious: Yes (Hospitalization)
  Sender: FDA-Public Use
  Company Number: ES-MERCK-0404ESP00033

PATIENT
  Age: 47 Year
  Sex: Male
  Weight: 65 kg

DRUGS (4)
  1. CLOXACILLIN SODIUM [Suspect]
     Route: 042
     Dates: start: 20040301, end: 20040311
  2. HYDROXYZINE HYDROCHLORIDE [Suspect]
     Route: 048
     Dates: start: 20040301, end: 20040311
  3. INDOCIN [Suspect]
     Indication: ECZEMA
     Route: 048
     Dates: start: 20040304, end: 20040305
  4. OMEPRAZOLE [Suspect]
     Route: 048
     Dates: start: 20040301, end: 20040311

REACTIONS (1)
  - RENAL FAILURE CHRONIC [None]
